FAERS Safety Report 20139925 (Version 2)
Quarter: 2022Q1

REPORT INFORMATION
  Report Type: Report from Study
  Country: CN (occurrence: CN)
  Receive Date: 20211202
  Receipt Date: 20220110
  Transmission Date: 20220424
  Serious: Yes (Hospitalization)
  Sender: FDA-Public Use
  Company Number: CN-PFIZER INC-202101632370

PATIENT
  Age: 67 Year
  Sex: Male
  Weight: 70 kg

DRUGS (51)
  1. PACLITAXEL [Suspect]
     Active Substance: PACLITAXEL
     Indication: Squamous cell carcinoma of lung
     Dosage: 336 MG, 1X/3 WEEKS
     Route: 041
     Dates: start: 20210730, end: 20210730
  2. PACLITAXEL [Suspect]
     Active Substance: PACLITAXEL
     Dosage: 327 MG, 1X/3 WEEKS
     Route: 041
     Dates: start: 20210821, end: 20210821
  3. PACLITAXEL [Suspect]
     Active Substance: PACLITAXEL
     Dosage: 327 MG, 1X/3 WEEKS
     Route: 041
     Dates: start: 20210911, end: 20210911
  4. PACLITAXEL [Suspect]
     Active Substance: PACLITAXEL
     Dosage: 327 MG, 1X/3 WEEKS
     Route: 041
     Dates: start: 20211002, end: 20211002
  5. INVESTIGATIONAL PRODUCT [Suspect]
     Active Substance: INVESTIGATIONAL PRODUCT
     Indication: Squamous cell carcinoma of lung
     Dosage: UNK
     Route: 041
     Dates: start: 20210729, end: 20210729
  6. INVESTIGATIONAL PRODUCT [Suspect]
     Active Substance: INVESTIGATIONAL PRODUCT
     Dosage: UNK
     Dates: start: 20210820, end: 20210820
  7. INVESTIGATIONAL PRODUCT [Suspect]
     Active Substance: INVESTIGATIONAL PRODUCT
     Dosage: UNK
     Dates: start: 20210910, end: 20210910
  8. INVESTIGATIONAL PRODUCT [Suspect]
     Active Substance: INVESTIGATIONAL PRODUCT
     Dosage: UNK
     Dates: start: 20211001, end: 20211001
  9. CARBOPLATIN [Suspect]
     Active Substance: CARBOPLATIN
     Indication: Squamous cell carcinoma of lung
     Dosage: 750 MG, 1X/3 WEEKS
     Route: 041
     Dates: start: 20210730, end: 20210730
  10. CARBOPLATIN [Suspect]
     Active Substance: CARBOPLATIN
     Dosage: 750 MG, 1X/3 WEEKS
     Route: 041
     Dates: start: 20210821, end: 20210821
  11. CARBOPLATIN [Suspect]
     Active Substance: CARBOPLATIN
     Dosage: 750 MG, 1X/3 WEEKS
     Route: 041
     Dates: start: 20210911, end: 20210911
  12. CARBOPLATIN [Suspect]
     Active Substance: CARBOPLATIN
     Dosage: 750 MG, 1X/3 WEEKS
     Route: 041
     Dates: start: 20211002, end: 20211002
  13. AMBROXOL HYDROCHLORIDE [Concomitant]
     Active Substance: AMBROXOL HYDROCHLORIDE
     Indication: Cough
     Dosage: 60 MG, 1X/DAY
     Route: 042
     Dates: start: 20210722, end: 20210805
  14. AMBROXOL HYDROCHLORIDE [Concomitant]
     Active Substance: AMBROXOL HYDROCHLORIDE
     Dosage: 60 MG, 1X/DAY
     Route: 042
     Dates: start: 20210820, end: 20210827
  15. AMBROXOL HYDROCHLORIDE [Concomitant]
     Active Substance: AMBROXOL HYDROCHLORIDE
     Dosage: 60 MG, 1X/DAY
     Route: 042
     Dates: start: 20210930, end: 20211006
  16. VITAMIN B6 [Concomitant]
     Active Substance: PYRIDOXINE HYDROCHLORIDE
     Indication: Vitamin supplementation
     Dosage: 200 MG, 1X/DAY
     Route: 042
     Dates: start: 20210722, end: 20210805
  17. VITAMIN B6 [Concomitant]
     Active Substance: PYRIDOXINE HYDROCHLORIDE
     Indication: Fluid replacement
     Dosage: 200 MG, 1X/DAY
     Route: 042
     Dates: start: 20211020, end: 20211101
  18. VITAMIN C [Concomitant]
     Active Substance: ASCORBIC ACID
     Indication: Vitamin supplementation
     Dosage: 2 G, 1X/DAY
     Route: 042
     Dates: start: 20210722, end: 20210805
  19. VITAMIN C [Concomitant]
     Active Substance: ASCORBIC ACID
     Indication: Fluid replacement
     Dosage: 2 G, 1X/DAY
     Route: 042
     Dates: start: 20211022, end: 20211101
  20. ESOMEPRAZOLE SODIUM [Concomitant]
     Active Substance: ESOMEPRAZOLE SODIUM
     Indication: Hyperchlorhydria
     Dosage: 40 MG, 1X/DAY
     Route: 042
     Dates: start: 20210729, end: 20210805
  21. AZASETRON HYDROCHLORIDE/SODIUM CHLORIDE [Concomitant]
     Indication: Vomiting
     Dosage: 10 MG, 1X/DAY
     Route: 042
     Dates: start: 20210729, end: 20210805
  22. AZASETRON HYDROCHLORIDE/SODIUM CHLORIDE [Concomitant]
     Indication: Prophylaxis of nausea and vomiting
     Dosage: 50 ML, 1X/DAY
     Route: 042
     Dates: start: 20210820, end: 20210827
  23. AZASETRON HYDROCHLORIDE/SODIUM CHLORIDE [Concomitant]
     Dosage: 50 ML, 1X/DAY
     Route: 042
     Dates: start: 20210910, end: 20210916
  24. AZASETRON HYDROCHLORIDE/SODIUM CHLORIDE [Concomitant]
     Dosage: 10 ML, 1X/DAY
     Route: 042
     Dates: start: 20211001, end: 20211006
  25. AMBROXOL HYDROCHLORIDE [Concomitant]
     Active Substance: AMBROXOL HYDROCHLORIDE
     Indication: Cough
     Dosage: UNK, 1X/DAY
     Route: 048
     Dates: start: 20210721
  26. CYNANCHUM STAUNTONII ROOT WITH RHIZOME/ERIOBOTRYA JAPONICA LEAF/MENTHO [Concomitant]
     Indication: Cough
     Dosage: UNK, 1X/DAY, QIANGLI PIPA LU
     Route: 048
     Dates: start: 20210721
  27. CIMETIDINE [Concomitant]
     Active Substance: CIMETIDINE
     Indication: Premedication
     Dosage: 0.3 G, ONCE
     Route: 042
     Dates: start: 20210730, end: 20210730
  28. CIMETIDINE [Concomitant]
     Active Substance: CIMETIDINE
     Dosage: 0.3 G, ONCE
     Route: 042
     Dates: start: 20210821, end: 20210821
  29. CIMETIDINE [Concomitant]
     Active Substance: CIMETIDINE
     Dosage: 0.3 G, ONCE
     Route: 042
     Dates: start: 20210911, end: 20210911
  30. CIMETIDINE [Concomitant]
     Active Substance: CIMETIDINE
     Dosage: 0.3 G, ONCE
     Route: 042
     Dates: start: 20211002, end: 20211002
  31. DEXAMETHASONE ACETATE [Concomitant]
     Active Substance: DEXAMETHASONE ACETATE
     Indication: Premedication
     Dosage: 20 TABLETS, 1X/DAY
     Route: 048
     Dates: start: 20210729, end: 20210730
  32. DEXAMETHASONE ACETATE [Concomitant]
     Active Substance: DEXAMETHASONE ACETATE
     Dosage: 26 TABLETS, 1X/DAY
     Route: 048
     Dates: start: 20210820, end: 20210821
  33. DEXAMETHASONE ACETATE [Concomitant]
     Active Substance: DEXAMETHASONE ACETATE
     Dosage: 26 TABLETS, 1X/DAY
     Route: 048
     Dates: start: 20210910, end: 20210911
  34. DEXAMETHASONE ACETATE [Concomitant]
     Active Substance: DEXAMETHASONE ACETATE
     Dosage: 40 MG, 1X/DAY
     Route: 048
     Dates: start: 20211002, end: 20211002
  35. IBUPROFEN [Concomitant]
     Active Substance: IBUPROFEN
     Indication: Pain in extremity
     Dosage: 1 CAPSULE, 1X/DAY, SUSTAINED RELEASE
     Route: 048
     Dates: start: 20210825
  36. SANGUISORBA OFFICINALIS [Concomitant]
     Indication: Prophylaxis
     Dosage: 2 CAPSULES, 3X/DAY, DIYU SHENGBAI TABLETS
     Route: 048
     Dates: start: 20210827
  37. ESOMEPRAZOLE SODIUM [Concomitant]
     Active Substance: ESOMEPRAZOLE SODIUM
     Indication: Prophylaxis
     Dosage: 40 MG, 1X/DAY
     Route: 042
     Dates: start: 20210820, end: 20210827
  38. ESOMEPRAZOLE SODIUM [Concomitant]
     Active Substance: ESOMEPRAZOLE SODIUM
     Dosage: 40 MG, 1X/DAY
     Route: 042
     Dates: start: 20210910, end: 20210916
  39. PROMETHAZINE HYDROCHLORIDE [Concomitant]
     Active Substance: PROMETHAZINE HYDROCHLORIDE
     Indication: Premedication
     Dosage: 25 MG, ONCE
     Route: 030
     Dates: start: 20210821, end: 20210821
  40. PROMETHAZINE HYDROCHLORIDE [Concomitant]
     Active Substance: PROMETHAZINE HYDROCHLORIDE
     Dosage: 25 MG, ONCE
     Route: 030
     Dates: start: 20210911, end: 20210911
  41. PROMETHAZINE HYDROCHLORIDE [Concomitant]
     Active Substance: PROMETHAZINE HYDROCHLORIDE
     Dosage: 25 MG, ONCE
     Route: 030
     Dates: start: 20211002, end: 20211002
  42. GRANULOCYTE COLONY-STIMULATING FACTOR NOS [Concomitant]
     Active Substance: GRANULOCYTE COLONY-STIMULATING FACTOR NOS
     Indication: White blood cell count decreased
     Dosage: 3 MG, ONCE, PEGYLATED RECOMBINANT HUMAN GRANULOCYTE STIMULATING FACTOR, HYPODERMAL ADMINISTRATION
     Dates: start: 20210824, end: 20210824
  43. GRANULOCYTE COLONY-STIMULATING FACTOR NOS [Concomitant]
     Active Substance: GRANULOCYTE COLONY-STIMULATING FACTOR NOS
     Indication: Granulocyte count decreased
     Dosage: 3 MG, ONCE, PEGYLATED RECOMBINANT HUMAN GRANULOCYTE STIMULATING FACTOR, HYPODERMAL ADMINISTRATION
     Dates: start: 20210912, end: 20210912
  44. GRANULOCYTE COLONY-STIMULATING FACTOR NOS [Concomitant]
     Active Substance: GRANULOCYTE COLONY-STIMULATING FACTOR NOS
     Indication: Prophylaxis
     Dosage: 3 MG, ONCE, PEGYLATED RECOMBINANT HUMAN GRANULOCYTE STIMULATING FACTOR, HYPODERMAL ADMINISTRATION
     Dates: start: 20210905, end: 20210905
  45. LIDOCAINE [Concomitant]
     Active Substance: LIDOCAINE
     Indication: Prophylaxis
     Dosage: 100 MG, ONCE
     Route: 042
     Dates: start: 20210729, end: 20210729
  46. METOCLOPRAMIDE DIHYDROCHLORIDE [Concomitant]
     Indication: Nausea
     Dosage: 100 MG, ONCE
     Route: 030
     Dates: start: 20210915, end: 20210915
  47. DOXOFYLLINE [Concomitant]
     Active Substance: DOXOFYLLINE
     Indication: Asthma
     Dosage: 0.3 G, 1X/DAY
     Route: 042
     Dates: start: 20210910, end: 20210916
  48. DOXOFYLLINE [Concomitant]
     Active Substance: DOXOFYLLINE
     Dosage: 0.3 G, 1X/DAY
     Route: 042
     Dates: start: 20210930, end: 20211006
  49. DOXOFYLLINE [Concomitant]
     Active Substance: DOXOFYLLINE
     Dosage: 0.3 G, 1X/DAY
     Route: 042
     Dates: start: 20211020, end: 20211101
  50. ONDANSETRON HYDROCHLORIDE [Concomitant]
     Active Substance: ONDANSETRON HYDROCHLORIDE
     Indication: Nausea
     Dosage: 1 TABLET, 1X/DAY
     Route: 048
     Dates: start: 20211005
  51. MONTMORILLONITE [Concomitant]
     Active Substance: MONTMORILLONITE
     Indication: Prophylaxis against diarrhoea
     Dosage: 1 POUCH, 3X/DAY
     Route: 048

REACTIONS (1)
  - Neuropathy peripheral [Not Recovered/Not Resolved]

NARRATIVE: CASE EVENT DATE: 20211019
